FAERS Safety Report 7484498-0 (Version None)
Quarter: 2011Q2

REPORT INFORMATION
  Report Type: 
  Country: None (occurrence: None)
  Receive Date: 20110517
  Receipt Date: 20110513
  Transmission Date: 20111010
  Serious: Yes (Hospitalization)
  Sender: FDA-Public Use
  Company Number: CH-JNJFOC-20110105201

PATIENT
  Age: 32 Year
  Sex: Female

DRUGS (6)
  1. IFOSFAMIDE [Suspect]
     Indication: SYNOVIAL SARCOMA
     Route: 065
     Dates: start: 20060215, end: 20060425
  2. SOLU-MEDROL [Suspect]
     Indication: SYNOVIAL SARCOMA
     Route: 065
     Dates: start: 20060215, end: 20060425
  3. NEUPOGEN [Suspect]
     Indication: SYNOVIAL SARCOMA
     Route: 042
     Dates: start: 20060222, end: 20060505
  4. DOXORUBICIN HCL [Suspect]
     Indication: SYNOVIAL SARCOMA
     Route: 042
     Dates: start: 20060215, end: 20060421
  5. MESNA [Suspect]
     Indication: SYNOVIAL SARCOMA
     Route: 065
     Dates: start: 20060215, end: 20060426
  6. ONDANSETRON HYDROCHLORIDE [Suspect]
     Indication: SYNOVIAL SARCOMA
     Route: 065
     Dates: start: 20060215, end: 20060426

REACTIONS (3)
  - PREMATURE DELIVERY [None]
  - DRUG EXPOSURE DURING PREGNANCY [None]
  - CAESAREAN SECTION [None]
